FAERS Safety Report 9335846 (Version 1)
Quarter: 2013Q2

REPORT INFORMATION
  Report Type: Spontaneous
  Country: AU (occurrence: AU)
  Receive Date: 20130606
  Receipt Date: 20130606
  Transmission Date: 20140414
  Serious: Yes (Other)
  Sender: FDA-Public Use
  Company Number: AU-ASTRAZENECA-2013SE24056

PATIENT
  Age: 87 Year
  Sex: Female

DRUGS (2)
  1. ATACAND [Suspect]
     Route: 048
     Dates: start: 1998
  2. SODIUM [Concomitant]

REACTIONS (3)
  - Memory impairment [Not Recovered/Not Resolved]
  - Confusional state [Not Recovered/Not Resolved]
  - Blood sodium decreased [Not Recovered/Not Resolved]
